FAERS Safety Report 6107933-9 (Version None)
Quarter: 2009Q1

REPORT INFORMATION
  Report Type: 
  Country: None (occurrence: None)
  Receive Date: 20090309
  Receipt Date: 20090302
  Transmission Date: 20090719
  Serious: Yes (Other)
  Sender: FDA-Public Use
  Company Number: AU-AVENTIS-200911952GDDC

PATIENT

DRUGS (5)
  1. ARAVA [Suspect]
     Dates: start: 20081101
  2. ARAVA [Suspect]
  3. ARAVA [Suspect]
  4. MTX                                /00113801/ [Concomitant]
     Dosage: DOSE: UNK
     Dates: start: 20040801
  5. FOLIC ACID [Concomitant]
     Dosage: DOSE: UNK
     Dates: start: 20040801

REACTIONS (1)
  - LIVER FUNCTION TEST ABNORMAL [None]
